FAERS Safety Report 7691970-7 (Version None)
Quarter: 2011Q3

REPORT INFORMATION
  Report Type: 
  Country: None (occurrence: None)
  Receive Date: 20110818
  Receipt Date: 20110803
  Transmission Date: 20111222
  Serious: Yes (Disabling)
  Sender: FDA-Public Use
  Company Number: PHHO2011NL13324

PATIENT
  Age: 62 Year
  Sex: Female

DRUGS (11)
  1. ONDANSETRON [Concomitant]
     Indication: PROPHYLAXIS
  2. ZOLEDRONIC [Suspect]
     Indication: BREAST CANCER
     Dosage: 4 MG, UNK
     Route: 042
     Dates: start: 20110618, end: 20110728
  3. CYCLOPHOSPHAMIDE [Suspect]
     Indication: BREAST CANCER
     Dosage: 1010 MG, UNK
     Route: 042
     Dates: start: 20110617
  4. GRANISETRON [Concomitant]
     Indication: PROPHYLAXIS
  5. DEXAMETHASONE [Concomitant]
     Indication: PROPHYLAXIS
  6. PEGFILGRASTIM [Concomitant]
     Indication: PROPHYLAXIS
  7. LERDIP [Concomitant]
  8. ADRIAMYCIN PFS [Suspect]
     Indication: BREAST CANCER
     Dosage: 152 MG, UNK
     Route: 042
     Dates: start: 20110617
  9. METOPROLOL [Concomitant]
  10. FOSINOPRIL W/HYDROCHLOROTHIAZIDE [Concomitant]
  11. DOCETAXEL [Suspect]
     Indication: BREAST CANCER
     Dosage: 101 MG, UNK
     Route: 042
     Dates: start: 20110617

REACTIONS (1)
  - TOOTH LOSS [None]
